FAERS Safety Report 7096980-9 (Version None)
Quarter: 2010Q4

REPORT INFORMATION
  Report Type: 
  Country: None (occurrence: None)
  Receive Date: 20101111
  Receipt Date: 20100101
  Transmission Date: 20110411
  Serious: No
  Sender: FDA-Public Use
  Company Number: US-KINGPHARMUSA00001-K201000007

PATIENT
  Sex: Female

DRUGS (1)
  1. EMBEDA [Suspect]
     Dosage: UNK
     Dates: start: 20091201

REACTIONS (4)
  - BLOOD PRESSURE INCREASED [None]
  - DRUG WITHDRAWAL SYNDROME [None]
  - HYPERHIDROSIS [None]
  - VOMITING [None]
